FAERS Safety Report 8307667-6 (Version None)
Quarter: 2012Q2

REPORT INFORMATION
  Report Type: 
  Country: None (occurrence: None)
  Receive Date: 20120424
  Receipt Date: 20120424
  Transmission Date: 20120825
  Serious: Yes (Life-Threatening, Hospitalization, Other)
  Sender: FDA-Public Use
  Company Number: None

PATIENT
  Sex: Male

DRUGS (1)
  1. PREDNISONE [Suspect]

REACTIONS (9)
  - CARDIAC FAILURE CONGESTIVE [None]
  - POSTURE ABNORMAL [None]
  - VISUAL ACUITY REDUCED [None]
  - CHRONIC OBSTRUCTIVE PULMONARY DISEASE [None]
  - SPINAL COMPRESSION FRACTURE [None]
  - BRONCHITIS CHRONIC [None]
  - RIB FRACTURE [None]
  - BODY HEIGHT DECREASED [None]
  - EMPHYSEMA [None]
